FAERS Safety Report 6910722-6 (Version None)
Quarter: 2010Q3

REPORT INFORMATION
  Report Type: 
  Country: None (occurrence: None)
  Receive Date: 20100806
  Receipt Date: 20100729
  Transmission Date: 20110219
  Serious: Yes (Other)
  Sender: FDA-Public Use
  Company Number: GB-ROCHE-718363

PATIENT
  Age: 57 Year
  Sex: Male

DRUGS (5)
  1. MYCOPHENOLATE MOFETIL [Suspect]
     Indication: VASCULITIS
     Dosage: ACTION TAKEN: DRUG WITHDRAWN
     Route: 048
     Dates: start: 20090412
  2. MYCOPHENOLATE MOFETIL [Suspect]
     Route: 048
  3. BENDROFLUAZIDE [Concomitant]
  4. COTRIM [Concomitant]
  5. PREDNISOLONE [Concomitant]

REACTIONS (1)
  - ERECTILE DYSFUNCTION [None]
